FAERS Safety Report 11195219 (Version 1)
Quarter: 2015Q2

REPORT INFORMATION
  Report Type: Spontaneous
  Country: CH (occurrence: CH)
  Receive Date: 20150617
  Receipt Date: 20150617
  Transmission Date: 20150821
  Serious: Yes (Hospitalization)
  Sender: FDA-Public Use
  Company Number: CH-AMGEN-CHESP2015057764

PATIENT
  Age: 57 Year
  Sex: Male
  Weight: 63.6 kg

DRUGS (7)
  1. LUCRIN [Concomitant]
     Active Substance: LEUPROLIDE ACETATE
     Dosage: UNK
  2. SPASMO-URGENIN NEO [Concomitant]
     Active Substance: TROSPIUM
     Dosage: UNK
  3. SPIRICORT [Suspect]
     Active Substance: PREDNISOLONE
     Indication: PROSTATE CANCER METASTATIC
     Dosage: 10 MG, QD
     Route: 048
  4. XGEVA [Suspect]
     Active Substance: DENOSUMAB
     Indication: PROSTATE CANCER METASTATIC
     Dosage: 1 DF, Q4WK
     Route: 058
     Dates: start: 20150119
  5. MST                                /00036302/ [Concomitant]
     Dosage: UNK
  6. CALCIMAGON                         /07357001/ [Concomitant]
     Dosage: UNK
  7. ZYTIGA [Concomitant]
     Active Substance: ABIRATERONE ACETATE
     Dosage: UNK

REACTIONS (1)
  - Oesophageal candidiasis [Recovered/Resolved]

NARRATIVE: CASE EVENT DATE: 20150401
